FAERS Safety Report 6895767-7 (Version None)
Quarter: 2010Q3

REPORT INFORMATION
  Report Type: 
  Country: None (occurrence: None)
  Receive Date: 20100802
  Receipt Date: 20100720
  Transmission Date: 20110219
  Serious: Yes (Hospitalization)
  Sender: FDA-Public Use
  Company Number: FR-PFIZER INC-2010092521

PATIENT
  Age: 48 Year
  Sex: Female

DRUGS (9)
  1. ATARAX [Suspect]
     Dosage: 25 MG, 3X/DAY
     Route: 048
     Dates: start: 20100520, end: 20100619
  2. VALIUM [Suspect]
     Dosage: 10 MG, 2X/DAY
     Route: 048
     Dates: start: 20100520, end: 20100619
  3. CYMBALTA [Suspect]
     Dosage: 60 MG, 2X/DAY
     Route: 048
     Dates: end: 20100619
  4. RAMIPRIL [Suspect]
     Route: 048
  5. IMOVANE [Suspect]
     Dosage: 1 DF, 1X/DAY
     Route: 048
  6. LANTUS [Suspect]
     Dosage: UNK
     Route: 058
     Dates: end: 20100619
  7. NOCTRAN 10 [Concomitant]
     Dosage: 10 MG, DAILY
  8. NEXIUM [Concomitant]
     Dosage: 40 MG, DAILY
  9. CREON [Concomitant]
     Dosage: 7500 IU, DAILY

REACTIONS (1)
  - PANCREATITIS ACUTE [None]
